FAERS Safety Report 13060165 (Version 1)
Quarter: 2016Q4

REPORT INFORMATION
  Report Type: Report from Study
  Country: US (occurrence: US)
  Receive Date: 20161223
  Receipt Date: 20161223
  Transmission Date: 20170207
  Serious: Yes (Hospitalization, Other)
  Sender: FDA-Public Use
  Company Number: US-009507513-1612USA006657

PATIENT
  Age: 61 Year
  Sex: Female
  Weight: 72 kg

DRUGS (34)
  1. BUPROPION HYDROCHLORIDE. [Concomitant]
     Active Substance: BUPROPION HYDROCHLORIDE
     Dosage: 75 MG, QD
     Route: 048
  2. SEVELAMER [Concomitant]
     Active Substance: SEVELAMER
     Dosage: 3 TABLETS , TID
  3. ZEMPLAR [Concomitant]
     Active Substance: PARICALCITOL
     Dosage: 4 MCG ON MONDAY, WEDNESDAY, FRIDAY AND SUNDAYY
     Route: 048
  4. ZEPATIER [Suspect]
     Active Substance: ELBASVIR\GRAZOPREVIR
     Indication: HEPATITIS C
     Dosage: DAILY DOSE: 1 TABLET, QD
     Route: 048
     Dates: start: 20160621, end: 20160801
  5. ALBUTEROL. [Concomitant]
     Active Substance: ALBUTEROL
     Dosage: 3 ML, Q4H-Q6H
  6. CINACALCET [Concomitant]
     Active Substance: CINACALCET
     Dosage: 30 MG, EVERY OTHER DAY
  7. GUAIFENESIN. [Concomitant]
     Active Substance: GUAIFENESIN
     Indication: COUGH
     Dosage: 10 ML,(200MG TOTAL) EVERY 4 HRS UNK
     Route: 048
  8. LACTULOSE. [Concomitant]
     Active Substance: LACTULOSE
     Indication: CONSTIPATION
     Dosage: 30 ML, UNK
     Route: 048
  9. MIRALAX [Concomitant]
     Active Substance: POLYETHYLENE GLYCOL 3350
     Dosage: 17 G, QD
     Route: 048
  10. VENLAFAXINE HYDROCHLORIDE. [Concomitant]
     Active Substance: VENLAFAXINE HYDROCHLORIDE
     Dosage: 75 MG, QD
     Route: 048
  11. ZINC SULFATE [Concomitant]
     Active Substance: ZINC SULFATE\ZINC SULFATE ANHYDROUS
     Dosage: 220 MG, BID
     Route: 048
  12. ALBUTEROL. [Concomitant]
     Active Substance: ALBUTEROL
     Indication: WHEEZING
     Dosage: INHALE 1 PUFF PO EVERY 4 HRS PRN
  13. EPOETIN ALFA [Concomitant]
     Active Substance: ERYTHROPOIETIN
     Dosage: DAILY DOSE: INJECT 5000 UNITS ON WEDNESDAY, QW
  14. LAMISIL [Concomitant]
     Active Substance: TERBINAFINE HYDROCHLORIDE
     Dosage: 1% CREAM APPLY QID
  15. ONDANSETRON [Concomitant]
     Active Substance: ONDANSETRON
     Dosage: 4 MG, Q8H AS NEEDED
     Route: 048
  16. TRIAMCINOLONE [Concomitant]
     Active Substance: TRIAMCINOLONE
     Dosage: 0.1% CREAM
  17. CARVEDILOL. [Concomitant]
     Active Substance: CARVEDILOL
     Dosage: 50 MG, BID
     Route: 048
  18. CLONAZEPAM. [Concomitant]
     Active Substance: CLONAZEPAM
     Dosage: 0.5 MG, QD
     Route: 048
  19. GENTAMICIN. [Concomitant]
     Active Substance: GENTAMICIN
     Dosage: 0.1% CREAM APPLY TOPICALLY
     Route: 061
  20. LISINOPRIL. [Concomitant]
     Active Substance: LISINOPRIL
     Dosage: 40 MG, QD
     Route: 048
  21. MAGNESIUM OXIDE. [Concomitant]
     Active Substance: MAGNESIUM OXIDE
     Dosage: 400 MG, TID
     Route: 048
  22. LORATADINE. [Concomitant]
     Active Substance: LORATADINE
     Dosage: 10 MG, AS NEEDED
     Route: 048
  23. TIOTROPIUM [Concomitant]
     Active Substance: TIOTROPIUM
     Dosage: INHALE ONE CAPSULE VIA HANDINHALER IN LUNGS
  24. BISACODYL. [Concomitant]
     Active Substance: BISACODYL
     Dosage: 10 MG, PLACE 1 SUPPOSITORY RECTALLY DAILY AS NEEDED
     Route: 054
  25. POTASSIUM CHLORIDE. [Concomitant]
     Active Substance: POTASSIUM CHLORIDE
     Dosage: 20 MEQ TABLETS
     Route: 048
  26. SENNA [Concomitant]
     Active Substance: SENNA LEAF\SENNOSIDES\SENNOSIDES A AND B
     Dosage: 8.6 MG TABLET, QD
     Route: 048
  27. DELTASONE [Concomitant]
     Active Substance: PREDNISONE
     Dosage: 4 MG, QD
  28. AMMONIUM LACTATE. [Concomitant]
     Active Substance: AMMONIUM LACTATE
     Dosage: LOTION APPLY TOPICALLY, BID
     Route: 061
  29. ASCORBIC ACID (+) FOLIC ACID (+) VITAMIN B COMPLEX [Concomitant]
     Dosage: DAILY DOSE: 1 TABLET, QD
     Route: 048
  30. AMLODIPINE [Concomitant]
     Active Substance: AMLODIPINE BESYLATE
     Dosage: 10 MG, AT BEDTIME UNK
     Route: 048
  31. DICLOFENAC [Concomitant]
     Active Substance: DICLOFENAC
     Dosage: 1% GEL APPLY TOPICALLY , QID
     Route: 061
  32. FLUTICASONE PROPIONATE (+) SALMETEROL XINAFOATE [Concomitant]
     Active Substance: FLUTICASONE PROPIONATE\SALMETEROL XINAFOATE
     Dosage: 250-50 MCG/DOSE INHALE 1 PUFF BID
  33. ISOSORBIDE MONONITRATE. [Concomitant]
     Active Substance: ISOSORBIDE MONONITRATE
     Dosage: TAKE 1 TABLET, QD AT 2PM
     Route: 048
  34. PANTOPRAZOLE [Concomitant]
     Active Substance: PANTOPRAZOLE SODIUM
     Dosage: 40 MG, BID

REACTIONS (11)
  - Copper deficiency [Unknown]
  - Memory impairment [Unknown]
  - Back pain [Unknown]
  - Arthralgia [Unknown]
  - Asthenia [Unknown]
  - Limb discomfort [Unknown]
  - Dyspnoea exertional [Unknown]
  - Abasia [Unknown]
  - Paraesthesia [Unknown]
  - Gait disturbance [Unknown]
  - Subacute combined cord degeneration [Unknown]

NARRATIVE: CASE EVENT DATE: 20160720
